FAERS Safety Report 4432316-7 (Version None)
Quarter: 2004Q3

REPORT INFORMATION
  Report Type: 
  Country: None (occurrence: None)
  Receive Date: 20040820
  Receipt Date: 20040805
  Transmission Date: 20050211
  Serious: Yes (Other)
  Sender: FDA-Public Use
  Company Number: K200401239

PATIENT
  Sex: 0

DRUGS (1)
  1. ALTACE [Suspect]

REACTIONS (2)
  - CHOLESTASIS [None]
  - JAUNDICE [None]
